FAERS Safety Report 22395213 (Version 1)
Quarter: 2023Q2

REPORT INFORMATION
  Report Type: Spontaneous
  Country: US (occurrence: US)
  Receive Date: 20230601
  Receipt Date: 20230601
  Transmission Date: 20230722
  Serious: Yes (Hospitalization)
  Sender: FDA-Public Use
  Company Number: US-PAIPHARMA-2023-US-014675

PATIENT
  Age: 36 Year
  Sex: Male
  Weight: 61.24 kg

DRUGS (1)
  1. CALCIUM CARBONATE ORAL SUSPENSION [Suspect]
     Active Substance: CALCIUM CARBONATE
     Indication: Product used for unknown indication
     Dosage: 2.5 ML TWICE PER DAY
     Route: 048
     Dates: start: 20230519, end: 20230519

REACTIONS (5)
  - Rash [Unknown]
  - Blood pressure increased [Unknown]
  - Heart rate increased [Unknown]
  - Crying [Unknown]
  - Pain [Unknown]

NARRATIVE: CASE EVENT DATE: 20230519
